FAERS Safety Report 9995257 (Version 2)
Quarter: 2014Q2

REPORT INFORMATION
  Report Type: Spontaneous
  Country: IT (occurrence: IT)
  Receive Date: 20140311
  Receipt Date: 20140417
  Transmission Date: 20141212
  Serious: Yes (Death)
  Sender: FDA-Public Use
  Company Number: IT-CELGENEUS-083-21880-14023921

PATIENT
  Age: 75 Year
  Sex: Male

DRUGS (3)
  1. REVLIMID [Suspect]
     Indication: PLASMA CELL MYELOMA
     Dosage: 8.0357 MILLIGRAM
     Route: 048
     Dates: start: 20130506, end: 20131130
  2. ASA [Concomitant]
     Indication: THROMBOSIS PROPHYLAXIS
     Route: 065
     Dates: start: 20130505, end: 20131020
  3. EPOX [Concomitant]
     Indication: ANAEMIA
     Dosage: IU
     Route: 065
     Dates: start: 20120924, end: 20131220

REACTIONS (2)
  - Plasma cell myeloma [Fatal]
  - Pneumonia [Fatal]
